FAERS Safety Report 19229281 (Version 1)
Quarter: 2021Q2

REPORT INFORMATION
  Report Type: Spontaneous
  Country: GB (occurrence: GB)
  Receive Date: 20210507
  Receipt Date: 20210507
  Transmission Date: 20210717
  Serious: Yes (Life-Threatening, Other)
  Sender: FDA-Public Use
  Company Number: GB-JNJFOC-20210450507

PATIENT
  Age: 45 Year
  Sex: Male
  Weight: 78.01 kg

DRUGS (1)
  1. REZOLSTA [Suspect]
     Active Substance: COBICISTAT\DARUNAVIR ETHANOLATE
     Indication: HIV INFECTION
     Dosage: 800MG DARUNAVIR/150MG COBICISTAT
     Route: 048
     Dates: start: 20210408, end: 20210420

REACTIONS (7)
  - Catatonia [Recovered/Resolved with Sequelae]
  - Medication error [Unknown]
  - Palpitations [Recovering/Resolving]
  - Sinus pain [Recovering/Resolving]
  - Asthma [Recovering/Resolving]
  - Sleep apnoea syndrome [Recovering/Resolving]
  - Depression suicidal [Recovered/Resolved with Sequelae]

NARRATIVE: CASE EVENT DATE: 20210421
